FAERS Safety Report 21838309 (Version 1)
Quarter: 2023Q1

REPORT INFORMATION
  Report Type: Spontaneous
  Country: US (occurrence: None)
  Receive Date: 20230107
  Receipt Date: 20230107
  Transmission Date: 20230417
  Serious: No
  Sender: FDA-Public Use
  Company Number: None

PATIENT
  Age: 46 Year
  Sex: Female

DRUGS (1)
  1. FLUOROURACIL [Suspect]
     Active Substance: FLUOROURACIL
     Indication: Skin exfoliation
     Dosage: FREQUENCY : TWICE A DAY;?
     Route: 061

REACTIONS (3)
  - Pruritus [None]
  - Pruritus [None]
  - Application site reaction [None]

NARRATIVE: CASE EVENT DATE: 20221101
